FAERS Safety Report 17046656 (Version 2)
Quarter: 2020Q2

REPORT INFORMATION
  Report Type: Spontaneous
  Country: CA (occurrence: CA)
  Receive Date: 20191119
  Receipt Date: 20200402
  Transmission Date: 20200713
  Serious: Yes (Other)
  Sender: FDA-Public Use
  Company Number: CA-DRREDDYS-USA/CAN/19/0116085

PATIENT
  Age: 74 Year
  Sex: Male

DRUGS (21)
  1. EZETIMIBE. [Suspect]
     Active Substance: EZETIMIBE
     Indication: HYPERCHOLESTEROLAEMIA
     Route: 048
  2. SINGULAIR [Concomitant]
     Active Substance: MONTELUKAST SODIUM
     Indication: ASTHMA
  3. RAMIPRIL. [Suspect]
     Active Substance: RAMIPRIL
     Indication: HYPERTENSION
     Route: 065
  4. VENTOLIN [Concomitant]
     Active Substance: ALBUTEROL SULFATE
     Indication: PRODUCT USED FOR UNKNOWN INDICATION
  5. ALTACE [Suspect]
     Active Substance: RAMIPRIL
     Indication: HYPERTENSION
     Route: 048
  6. ATENOLOL TABLETS, BP [Suspect]
     Active Substance: ATENOLOL
     Indication: HYPERTENSION
     Route: 048
  7. PULMICORT TURBUHALER [Concomitant]
     Active Substance: BUDESONIDE
     Indication: ASTHMA
  8. SALBUTAMOL SULFATE [Concomitant]
     Active Substance: ALBUTEROL SULFATE
     Indication: ASTHMA
  9. ATORVASTATIN [Suspect]
     Active Substance: ATORVASTATIN
     Indication: HYPERCHOLESTEROLAEMIA
     Route: 048
  10. ALFUZOSIN HYDROCHLORIDE. [Suspect]
     Active Substance: ALFUZOSIN HYDROCHLORIDE
     Indication: BENIGN PROSTATIC HYPERPLASIA
     Route: 048
  11. OMALIZUMAB. [Suspect]
     Active Substance: OMALIZUMAB
     Indication: ASTHMA
     Route: 058
  12. DESOXIMETASONE. [Suspect]
     Active Substance: DESOXIMETASONE
     Indication: PRODUCT USED FOR UNKNOWN INDICATION
  13. PREDNISONE. [Concomitant]
     Active Substance: PREDNISONE
     Indication: ASTHMA
  14. XOLAIR [Suspect]
     Active Substance: OMALIZUMAB
     Indication: ASTHMA
     Route: 058
  15. SPIRIVA [Concomitant]
     Active Substance: TIOTROPIUM BROMIDE MONOHYDRATE
     Indication: ASTHMA
  16. VENTOLIN [Concomitant]
     Active Substance: ALBUTEROL SULFATE
  17. AMLODIPINE [Suspect]
     Active Substance: AMLODIPINE BESYLATE
     Indication: HYPERTENSION
     Route: 048
  18. ATENOLOL. [Suspect]
     Active Substance: ATENOLOL
     Indication: HYPERTENSION
     Route: 048
  19. XOLAIR [Suspect]
     Active Substance: OMALIZUMAB
  20. RAMIPRIL. [Suspect]
     Active Substance: RAMIPRIL
  21. SYMBICORT [Concomitant]
     Active Substance: BUDESONIDE\FORMOTEROL FUMARATE DIHYDRATE
     Indication: ASTHMA

REACTIONS (7)
  - Steroid diabetes [Not Recovered/Not Resolved]
  - Asthma [Not Recovered/Not Resolved]
  - Drug ineffective [Not Recovered/Not Resolved]
  - Allergy to animal [Not Recovered/Not Resolved]
  - Dyspnoea at rest [Not Recovered/Not Resolved]
  - Dyspnoea exertional [Not Recovered/Not Resolved]
  - Dyspnoea [Not Recovered/Not Resolved]
